FAERS Safety Report 25210935 (Version 2)
Quarter: 2025Q2

REPORT INFORMATION
  Report Type: Spontaneous
  Country: US (occurrence: US)
  Receive Date: 20250417
  Receipt Date: 20250522
  Transmission Date: 20250717
  Serious: No
  Sender: ABBVIE
  Company Number: US-ABBVIE-6223974

PATIENT
  Age: 48 Year
  Sex: Female
  Weight: 120 kg

DRUGS (1)
  1. BOTOX COSMETIC [Suspect]
     Active Substance: ONABOTULINUMTOXINA
     Indication: Product used for unknown indication
     Route: 065

REACTIONS (5)
  - Swelling face [Not Recovered/Not Resolved]
  - Facial pain [Unknown]
  - Skin burning sensation [Not Recovered/Not Resolved]
  - Depression [Unknown]
  - Dyspnoea [Unknown]
